FAERS Safety Report 8775908 (Version 3)
Quarter: 2012Q4

REPORT INFORMATION
  Report Type: 
  Country: JP (occurrence: JP)
  Receive Date: 20120910
  Receipt Date: 20121001
  Transmission Date: 20130627
  Serious: Yes (Death)
  Sender: FDA-Public Use
  Company Number: JP-B.I. PHARMACEUTICALS,INC./RIDGEFIELD-2012-BP-22292NB

PATIENT
  Age: 76 Year
  Sex: Male
  Weight: 71.2 kg

DRUGS (6)
  1. PRAZAXA [Suspect]
     Indication: ATRIAL FIBRILLATION
     Dosage: 300 mg
     Route: 048
     Dates: start: 20110512
  2. PRAZAXA [Suspect]
     Dosage: 220 mg
     Route: 048
     Dates: start: 20120310, end: 20120620
  3. PRAZAXA [Suspect]
     Dosage: 150 mg
     Route: 048
     Dates: start: 20120621
  4. CO-DIO [Concomitant]
     Route: 065
  5. ARTIST [Concomitant]
     Route: 065
  6. NORVASC [Concomitant]
     Route: 065

REACTIONS (2)
  - Cerebral infarction [Fatal]
  - Brain herniation [Fatal]
